FAERS Safety Report 19662354 (Version 4)
Quarter: 2022Q2

REPORT INFORMATION
  Report Type: Report from Study
  Country: CA (occurrence: CA)
  Receive Date: 20210805
  Receipt Date: 20220607
  Transmission Date: 20220721
  Serious: Yes (Other)
  Sender: FDA-Public Use
  Company Number: CA-BRISTOL-MYERS SQUIBB COMPANY-BMS-2021-076690

PATIENT
  Age: 73 Year
  Sex: Female

DRUGS (2)
  1. ABATACEPT [Suspect]
     Active Substance: ABATACEPT
     Indication: Rheumatoid arthritis
     Dosage: 500 MILLIGRAM, Q4WK
     Route: 042
     Dates: start: 20150226
  2. COVID-19 VACCINE [Concomitant]
     Indication: Prophylaxis
     Dosage: 2ND DOSE
     Route: 065
     Dates: start: 20210705

REACTIONS (4)
  - Hypotension [Unknown]
  - Lung disorder [Unknown]
  - Treatment failure [Unknown]
  - Off label use [Unknown]
